FAERS Safety Report 14757894 (Version 1)
Quarter: 2018Q2

REPORT INFORMATION
  Report Type: Spontaneous
  Country: US (occurrence: US)
  Receive Date: 20180413
  Receipt Date: 20180413
  Transmission Date: 20180711
  Serious: Yes (Other)
  Sender: FDA-Public Use
  Company Number: US-ELI_LILLY_AND_COMPANY-US201804004187

PATIENT
  Sex: Female

DRUGS (1)
  1. CYMBALTA [Suspect]
     Active Substance: DULOXETINE HYDROCHLORIDE
     Indication: FIBROMYALGIA
     Dosage: UNK, UNKNOWN
     Route: 065
     Dates: start: 2008, end: 20180325

REACTIONS (5)
  - Fall [Unknown]
  - Vertigo [Unknown]
  - Gait disturbance [Unknown]
  - Drug withdrawal syndrome [Unknown]
  - Dizziness [Unknown]
